FAERS Safety Report 6642420-0 (Version None)
Quarter: 2010Q1

REPORT INFORMATION
  Report Type: 
  Country: None (occurrence: None)
  Receive Date: 20100319
  Receipt Date: 20100311
  Transmission Date: 20100710
  Serious: Yes (Disabling, Other)
  Sender: FDA-Public Use
  Company Number: US-ROCHE-72710

PATIENT
  Age: 82 Year
  Sex: Female

DRUGS (7)
  1. LARIAM [Suspect]
     Indication: DRUG USE FOR UNKNOWN INDICATION
     Dosage: TOTAL DOSE OF 15250 MG
     Route: 048
     Dates: start: 19960822, end: 19961022
  2. DEPAKOTE [Concomitant]
     Indication: MIGRAINE
     Route: 048
  3. CARDIZEM [Concomitant]
  4. APRESOLINE [Concomitant]
  5. DESYREL [Concomitant]
  6. ULTRAM [Concomitant]
  7. PROPOXYPHENE HCL [Concomitant]

REACTIONS (13)
  - ABASIA [None]
  - AGITATION [None]
  - ALANINE AMINOTRANSFERASE INCREASED [None]
  - ASTHENIA [None]
  - ATAXIA [None]
  - BUNDLE BRANCH BLOCK [None]
  - CONFUSIONAL STATE [None]
  - DEAFNESS [None]
  - DIZZINESS [None]
  - MEDICATION ERROR [None]
  - OVERDOSE [None]
  - RESPIRATORY DISORDER [None]
  - SPEECH DISORDER [None]
